FAERS Safety Report 11878262 (Version 2)
Quarter: 2016Q1

REPORT INFORMATION
  Report Type: Spontaneous
  Country: US (occurrence: US)
  Receive Date: 20151230
  Receipt Date: 20160208
  Transmission Date: 20160526
  Serious: Yes (Other)
  Sender: FDA-Public Use
  Company Number: US-AMGEN-USASP2015138571

PATIENT
  Age: 59 Year
  Sex: Female

DRUGS (1)
  1. ENBREL [Suspect]
     Active Substance: ETANERCEPT
     Indication: RHEUMATOID ARTHRITIS
     Dosage: 50 MG, QWK
     Route: 065

REACTIONS (9)
  - Injection site reaction [Unknown]
  - Injection site pain [Unknown]
  - Eye luxation [Unknown]
  - Underdose [Unknown]
  - Device issue [Unknown]
  - Cough [Unknown]
  - Malaise [Unknown]
  - Injection site erythema [Unknown]
  - Injection site pruritus [Unknown]
